FAERS Safety Report 9062046 (Version 2)
Quarter: 2013Q1

REPORT INFORMATION
  Report Type: Spontaneous
  Country: BE (occurrence: BE)
  Receive Date: 20130204
  Receipt Date: 20130218
  Transmission Date: 20140127
  Serious: Yes (Other)
  Sender: FDA-Public Use
  Company Number: BE-ELI_LILLY_AND_COMPANY-BE201301008822

PATIENT
  Sex: Male
  Weight: 80 kg

DRUGS (3)
  1. CYMBALTA [Suspect]
     Indication: MYALGIA
     Dosage: 60 MG, UNKNOWN
     Route: 048
     Dates: start: 20120926, end: 20121219
  2. NORTRILEN [Interacting]
     Indication: PAIN
     Dosage: 9 MG, UNKNOWN
  3. NORTRILEN [Interacting]
     Dosage: 16 MG, TID
     Route: 048
     Dates: start: 20100901, end: 20121219

REACTIONS (7)
  - Type 2 diabetes mellitus [Recovering/Resolving]
  - Ketoacidosis [Unknown]
  - Dizziness [Unknown]
  - Drug interaction [Unknown]
  - Off label use [Unknown]
  - Dehydration [None]
  - Blood glucose fluctuation [None]
